FAERS Safety Report 6369960-6 (Version None)
Quarter: 2009Q3

REPORT INFORMATION
  Report Type: 
  Country: None (occurrence: None)
  Receive Date: 20090923
  Receipt Date: 20070717
  Transmission Date: 20100115
  Serious: No
  Sender: FDA-Public Use
  Company Number: US-ASTRAZENECA-2006UW07081

PATIENT
  Sex: Female
  Weight: 126.1 kg

DRUGS (3)
  1. SEROQUEL [Suspect]
     Route: 048
  2. ZYPREXA [Suspect]
     Route: 065
  3. RISPERDAL [Suspect]
     Route: 065

REACTIONS (1)
  - ILL-DEFINED DISORDER [None]
